FAERS Safety Report 17677846 (Version 2)
Quarter: 2020Q2

REPORT INFORMATION
  Report Type: Report from Study
  Country: US (occurrence: US)
  Receive Date: 20200416
  Receipt Date: 20200430
  Transmission Date: 20200714
  Serious: Yes (Hospitalization)
  Sender: FDA-Public Use
  Company Number: US-BIOGEN-2020BI00863074

PATIENT
  Sex: Female

DRUGS (1)
  1. TECFIDERA [Suspect]
     Active Substance: DIMETHYL FUMARATE
     Indication: MULTIPLE SCLEROSIS
     Dosage: MAINTENANCE DOSE
     Route: 048
     Dates: start: 20180817, end: 201907

REACTIONS (4)
  - Decreased immune responsiveness [Unknown]
  - Pneumonia [Recovered/Resolved]
  - Malaise [Recovered/Resolved]
  - Cardiac failure congestive [Not Recovered/Not Resolved]
